FAERS Safety Report 10363398 (Version 1)
Quarter: 2014Q3

REPORT INFORMATION
  Report Type: Spontaneous
  Country: JP (occurrence: JP)
  Receive Date: 20140805
  Receipt Date: 20140805
  Transmission Date: 20150326
  Serious: Yes (Hospitalization)
  Sender: FDA-Public Use
  Company Number: JP-PFIZER INC-2014217034

PATIENT
  Age: 52 Year

DRUGS (3)
  1. SERENACE [Concomitant]
     Active Substance: HALOPERIDOL
     Indication: MENTAL DISORDER
     Route: 048
  2. HALCION [Suspect]
     Active Substance: TRIAZOLAM
     Indication: MENTAL DISORDER
     Route: 048
  3. HALOSTEN [Concomitant]
     Active Substance: HALOPERIDOL
     Indication: MENTAL DISORDER
     Route: 048

REACTIONS (1)
  - Fungal infection [Unknown]
